FAERS Safety Report 16090147 (Version 1)
Quarter: 2019Q1

REPORT INFORMATION
  Report Type: Spontaneous
  Country: US (occurrence: NL)
  Receive Date: 20190319
  Receipt Date: 20190319
  Transmission Date: 20190418
  Serious: Yes (Death)
  Sender: FDA-Public Use
  Company Number: US-AMNEAL PHARMACEUTICALS-2019AMN00333

PATIENT

DRUGS (4)
  1. VITAMIN B12 [Concomitant]
     Active Substance: CYANOCOBALAMIN
     Indication: SUPPLEMENTATION THERAPY
  2. PRALATREXATE [Concomitant]
     Active Substance: PRALATREXATE
     Indication: ADJUVANT THERAPY
     Dosage: 30 MG/M (2), 6 WEEKLY DOSES, FOLLOWED BT 1 WEEK OF REST PER CYCLE
     Route: 065
  3. LEVOLEUCOVORIN. [Suspect]
     Active Substance: LEVOLEUCOVORIN
     Indication: ADJUVANT THERAPY
     Dosage: 25 MG, 3X/DAY
     Route: 048
  4. FOLIC ACID. [Suspect]
     Active Substance: FOLIC ACID
     Indication: SUPPLEMENTATION THERAPY
     Dosage: UNK
     Route: 065

REACTIONS (1)
  - Adverse event [Fatal]
